FAERS Safety Report 24989996 (Version 6)
Quarter: 2025Q1

REPORT INFORMATION
  Report Type: Report from Study
  Country: US (occurrence: US)
  Receive Date: 20250220
  Receipt Date: 20250319
  Transmission Date: 20250409
  Serious: Yes (Other)
  Sender: JAZZ
  Company Number: US-JAZZ PHARMACEUTICALS-2025-US-004151

PATIENT
  Sex: Female

DRUGS (4)
  1. SODIUM OXYBATE [Suspect]
     Active Substance: SODIUM OXYBATE
     Indication: Narcolepsy
  2. SODIUM OXYBATE [Suspect]
     Active Substance: SODIUM OXYBATE
     Indication: Cataplexy
     Dosage: 3.75 GRAM, BID
  3. SODIUM OXYBATE [Suspect]
     Active Substance: SODIUM OXYBATE
     Indication: Somnolence
     Dosage: 3.5 GRAM, BID
  4. ALLERGY [NAPHAZOLINE HYDROCHLORIDE] [Concomitant]
     Indication: Product used for unknown indication
     Dates: start: 20090101

REACTIONS (4)
  - Brain injury [Unknown]
  - Vomiting [Unknown]
  - Depression [Unknown]
  - Throat irritation [Unknown]
